FAERS Safety Report 10033150 (Version 1)
Quarter: 2014Q1

REPORT INFORMATION
  Report Type: Report from Study
  Country: IT (occurrence: IT)
  Receive Date: 20140324
  Receipt Date: 20140324
  Transmission Date: 20141002
  Serious: Yes (Other)
  Sender: FDA-Public Use
  Company Number: IT-BAXTER-2014BAX015245

PATIENT
  Sex: 0

DRUGS (11)
  1. FLUDARABINE [Suspect]
     Indication: HODGKIN^S DISEASE
     Dosage: FROM DAY -6 TO DAY -2
     Route: 065
  2. TACROLIMUS [Suspect]
     Indication: HODGKIN^S DISEASE
     Route: 042
  3. CYCLOSPORIN A [Suspect]
     Indication: HODGKIN^S DISEASE
     Route: 042
  4. MYCOPHENOLATE MOFETIL [Suspect]
     Indication: HODGKIN^S DISEASE
     Dosage: UNTIL DAY +30
  5. ACYCLOVIR [Suspect]
     Indication: HODGKIN^S DISEASE
     Route: 065
  6. LEVOFLOXACINE [Suspect]
     Indication: HODGKIN^S DISEASE
     Route: 065
  7. COTRIMOXAZOLE [Suspect]
     Indication: HODGKIN^S DISEASE
     Dosage: UNTIL DAY -2
     Route: 048
  8. COTRIMOXAZOLE [Suspect]
     Dosage: THEN RESUME AFTER HEMATOLOGICAL RECONSTITUTION
     Route: 048
  9. ENDOXAN BAXTER [Suspect]
     Indication: HODGKIN^S DISEASE
     Dosage: ON DAYS -6 AND -5
     Route: 065
  10. ENDOXAN BAXTER [Suspect]
     Dosage: DAYS +3 AND +4
     Route: 065
  11. FLUCONAZOLO BAXTER [Suspect]
     Indication: HODGKIN^S DISEASE
     Dosage: UNTIL DAY +75
     Route: 065

REACTIONS (1)
  - Pneumonia [Unknown]
